FAERS Safety Report 7597731-1 (Version None)
Quarter: 2011Q3

REPORT INFORMATION
  Report Type: 
  Country: None (occurrence: None)
  Receive Date: 20110708
  Receipt Date: 20110630
  Transmission Date: 20111222
  Serious: Yes (Other)
  Sender: FDA-Public Use
  Company Number: JP-GLAXOSMITHKLINE-B0712230A

PATIENT
  Sex: Female
  Weight: 44 kg

DRUGS (35)
  1. ALKERAN [Suspect]
     Indication: ALLOGENIC BONE MARROW TRANSPLANTATION THERAPY
     Dosage: 70MGM2 PER DAY
     Route: 042
     Dates: start: 20090928, end: 20090929
  2. DIOVAN [Concomitant]
     Dosage: 40MG PER DAY
     Route: 048
  3. DIOVAN [Concomitant]
     Dosage: 40MG PER DAY
     Route: 048
  4. URSO 250 [Concomitant]
     Dosage: 600MG PER DAY
     Route: 048
  5. SULFAMETHOXAZOLE [Concomitant]
     Dosage: 4IUAX PER DAY
     Route: 048
     Dates: end: 20090929
  6. URSO 250 [Concomitant]
     Dosage: 600MG PER DAY
     Route: 048
  7. SANDIMMUNE [Suspect]
     Dosage: 65MG PER DAY
     Route: 042
     Dates: start: 20091019
  8. FLUDARA [Concomitant]
     Indication: ALLOGENIC BONE MARROW TRANSPLANTATION THERAPY
     Dosage: 30MGM2 PER DAY
     Route: 042
     Dates: start: 20090924, end: 20090928
  9. PURSENNID [Concomitant]
     Dosage: 36MG PER DAY
     Route: 048
     Dates: end: 20091227
  10. LANSOPRAZOLE [Concomitant]
     Dosage: 30MG PER DAY
     Route: 048
     Dates: end: 20091105
  11. FUROSEMIDE [Concomitant]
     Dosage: 40MG PER DAY
     Dates: end: 20091024
  12. MAXIPIME [Concomitant]
     Dosage: 4G PER DAY
     Dates: start: 20090928, end: 20091005
  13. MUCODYNE [Concomitant]
     Dosage: 1500MG PER DAY
     Route: 048
     Dates: end: 20091217
  14. CIPROFLOXACIN HCL [Concomitant]
     Dosage: 600MG PER DAY
     Route: 048
     Dates: end: 20090930
  15. MAGNESIUM SULFATE [Concomitant]
     Dosage: 600MG PER DAY
     Route: 048
     Dates: end: 20091002
  16. MUCOSOLVAN [Concomitant]
     Dosage: 45MG PER DAY
     Route: 048
     Dates: end: 20091105
  17. SINGULAIR [Concomitant]
     Dosage: 10MG PER DAY
     Route: 048
     Dates: end: 20091217
  18. DEPAS [Concomitant]
     Dosage: 1.5MG PER DAY
     Route: 048
  19. ZOVIRAX [Concomitant]
     Dosage: 1000MG PER DAY
     Route: 048
     Dates: end: 20091022
  20. CHINESE MEDICINE [Concomitant]
     Dosage: 1.5G PER DAY
     Route: 048
     Dates: end: 20091002
  21. FUROSEMIDE [Concomitant]
     Dosage: 40MG PER DAY
     Route: 042
     Dates: end: 20091024
  22. MAXIPIME [Concomitant]
     Dosage: 4G PER DAY
     Route: 042
     Dates: start: 20090928, end: 20091005
  23. CHINESE MEDICINE [Concomitant]
     Dosage: 1.5G PER DAY
     Route: 048
     Dates: end: 20091002
  24. METHOTREXATE [Concomitant]
     Indication: IMMUNOSUPPRESSION
     Dosage: 14.3MG PER DAY
     Route: 065
     Dates: start: 20091002, end: 20091007
  25. MAGNESIUM SULFATE [Concomitant]
     Dosage: 600MG PER DAY
     Route: 048
     Dates: end: 20091002
  26. PRIMPERAN TAB [Concomitant]
     Dosage: 10MG PER DAY
     Dates: start: 20090928, end: 20091020
  27. ITRACONAZOLE [Concomitant]
     Dosage: 20ML PER DAY
     Route: 048
     Dates: end: 20091015
  28. SAXIZON [Concomitant]
     Dosage: 100MG PER DAY
     Dates: start: 20090928, end: 20091229
  29. PRIMPERAN TAB [Concomitant]
     Dosage: 10MG PER DAY
     Dates: start: 20090928, end: 20091020
  30. SANDIMMUNE [Suspect]
     Indication: IMMUNOSUPPRESSION
     Dosage: 65MG PER DAY
     Route: 042
     Dates: start: 20090929, end: 20091017
  31. ALESION [Concomitant]
     Dosage: 20MG PER DAY
     Route: 048
     Dates: end: 20091112
  32. ZOLPIDEM [Concomitant]
     Dosage: 5MG PER DAY
     Route: 048
  33. SULFAMETHOXAZOLE [Concomitant]
     Dosage: 4IUAX PER DAY
     Route: 048
     Dates: end: 20090929
  34. KYTRIL [Concomitant]
     Dosage: 6MG PER DAY
     Route: 042
     Dates: end: 20090829
  35. LANSOPRAZOLE [Concomitant]
     Dosage: 30MG PER DAY
     Route: 048
     Dates: end: 20091105

REACTIONS (1)
  - MELAENA [None]
